FAERS Safety Report 5603791-7 (Version None)
Quarter: 2008Q1

REPORT INFORMATION
  Report Type: 
  Country: None (occurrence: None)
  Receive Date: 20080122
  Receipt Date: 20080104
  Transmission Date: 20080703
  Serious: Yes (Other)
  Sender: FDA-Public Use
  Company Number: US-1164883

PATIENT
  Sex: Female

DRUGS (4)
  1. BSS [Suspect]
     Indication: CATARACT OPERATION
     Dosage: (500 ML INTRAOCULAR)
     Route: 031
     Dates: start: 20080103, end: 20080103
  2. ALPHAGAN [Concomitant]
  3. VIGAMOX [Concomitant]
  4. TETRACAINE [Concomitant]

REACTIONS (1)
  - TOXIC ANTERIOR SEGMENT SYNDROME [None]
